FAERS Safety Report 8853197 (Version 1)
Quarter: 2012Q4

REPORT INFORMATION
  Report Type: 
  Country: DE (occurrence: DE)
  Receive Date: 20121022
  Receipt Date: 20121022
  Transmission Date: 20130627
  Serious: Yes (Hospitalization)
  Sender: FDA-Public Use
  Company Number: DE-GE HEALTHCARE MEDICAL DIAGNOSTICS-OMPQ-GE-1210S-1109

PATIENT
  Age: 82 Year
  Sex: Female
  Weight: 65 kg

DRUGS (22)
  1. IOHEXOL [Suspect]
     Indication: PRODUCT USED FOR UNKNOWN INDICATION
     Route: 042
     Dates: start: 20120809, end: 20120809
  2. ACETYLSAICYLIC ACID (ASPIRIN) [Concomitant]
     Dates: start: 20120808, end: 20120808
  3. PLACEBO [Concomitant]
     Route: 042
     Dates: start: 20120809, end: 20120809
  4. CLOPIDOGREL [Concomitant]
     Dates: start: 20120809, end: 20120809
  5. CANGRELOR [Concomitant]
     Dates: start: 20120809, end: 20120809
  6. ACETYLSALICYLIC ACID (ASPIRIN) [Concomitant]
     Route: 042
     Dates: start: 20120809, end: 20120809
  7. NITROLINGUAL [Concomitant]
     Route: 013
     Dates: start: 20120809, end: 20120809
  8. RANITIC [Concomitant]
     Route: 042
     Dates: start: 20120809, end: 20120809
  9. TAVEGIL [Concomitant]
     Dates: start: 20120809, end: 20120809
  10. SOLU DECORTIN [Concomitant]
     Dates: start: 20120809, end: 20120809
  11. CALCIVIT [Concomitant]
     Dates: start: 20070801
  12. L-THYROXINE [Concomitant]
     Dates: start: 19580101, end: 19580101
  13. GLIMEPIRIDE [Concomitant]
  14. METFORMIN [Concomitant]
  15. ACETYLSALICYLIC ACID [Concomitant]
     Dates: start: 20120701
  16. RAMILICH [Concomitant]
  17. FERRO DUODENAL [Concomitant]
     Dates: start: 20070101
  18. CETRIZINE [Concomitant]
  19. PREDNISOLONE ACETATE [Concomitant]
     Dates: start: 20070101
  20. ACETYLSALICYLIC ACID [Concomitant]
     Dates: start: 20120809, end: 20120809
  21. UNFRACTIONATED HEPARIN 6000 IE [Concomitant]
     Dates: start: 20120809, end: 20120809
  22. CLOPIDOGREL [Concomitant]
     Dates: start: 20120809, end: 20120809

REACTIONS (1)
  - Blood creatinine increased [Recovered/Resolved]
